FAERS Safety Report 9432919 (Version 2)
Quarter: 2013Q3

REPORT INFORMATION
  Report Type: Report from Study
  Country: US (occurrence: US)
  Receive Date: 20130731
  Receipt Date: 20130927
  Transmission Date: 20140515
  Serious: Yes (Other)
  Sender: FDA-Public Use
  Company Number: US-ACTELION-A-US2013-85279

PATIENT
  Age: 60 Year
  Sex: Female

DRUGS (6)
  1. VELETRI [Suspect]
     Indication: PULMONARY ARTERIAL HYPERTENSION
     Dosage: 21 NG/KG, PER MIN
     Route: 042
     Dates: start: 20130203, end: 20130722
  2. VELETRI [Suspect]
     Dosage: 73 NG/KG, PER MIN
     Route: 042
     Dates: start: 20120203, end: 20130722
  3. COUMADIN [Concomitant]
  4. SILDENAFIL [Concomitant]
  5. FLOLAN [Concomitant]
     Dosage: UNK
     Dates: start: 201202, end: 20130722
  6. REMODULIN [Concomitant]

REACTIONS (4)
  - Hypersensitivity vasculitis [Recovered/Resolved]
  - Platelet count decreased [Recovered/Resolved]
  - Biopsy [Unknown]
  - Hypersensitivity [Unknown]
